FAERS Safety Report 17965255 (Version 1)
Quarter: 2020Q2

REPORT INFORMATION
  Report Type: Spontaneous
  Country: US (occurrence: US)
  Receive Date: 20200630
  Receipt Date: 20200630
  Transmission Date: 20200714
  Serious: No
  Sender: FDA-Public Use
  Company Number: US-PFIZER INC-2020-07417

PATIENT
  Age: 50 Year
  Sex: Female

DRUGS (17)
  1. NEURONTIN [Concomitant]
     Active Substance: GABAPENTIN
     Dosage: UNK
  2. HYDROMORPHONE [Concomitant]
     Active Substance: HYDROMORPHONE
     Dosage: UNK
  3. PROCHLORPERAZINE. [Concomitant]
     Active Substance: PROCHLORPERAZINE
     Dosage: UNK
  4. HYDROXYZINE [Concomitant]
     Active Substance: HYDROXYZINE HYDROCHLORIDE
     Dosage: UNK
  5. ZOFRAN [Concomitant]
     Active Substance: ONDANSETRON HYDROCHLORIDE
     Dosage: UNK
  6. MEKTOVI [Suspect]
     Active Substance: BINIMETINIB
     Dosage: 45 MG, 1X/DAY
     Route: 048
  7. BRAFTOVI [Suspect]
     Active Substance: ENCORAFENIB
     Indication: METASTASIS
     Dosage: 450 MG, 1X/DAY
     Route: 048
  8. BRAFTOVI [Suspect]
     Active Substance: ENCORAFENIB
     Dosage: 450 MG, 1X/DAY
     Route: 048
  9. MS CONTIN [Concomitant]
     Active Substance: MORPHINE SULFATE
     Dosage: UNK
  10. SYNTHROID [Concomitant]
     Active Substance: LEVOTHYROXINE SODIUM
     Dosage: UNK
  11. ZINC. [Concomitant]
     Active Substance: ZINC
     Dosage: UNK
  12. LEXAPRO [Concomitant]
     Active Substance: ESCITALOPRAM OXALATE
     Dosage: UNK
  13. RITALIN [Concomitant]
     Active Substance: METHYLPHENIDATE HYDROCHLORIDE
     Dosage: UNK
  14. SENOKOT [Concomitant]
     Active Substance: SENNOSIDES
     Dosage: UNK
  15. MEKTOVI [Suspect]
     Active Substance: BINIMETINIB
     Indication: METASTASIS
     Dosage: 45 MG, 2X/DAY
     Route: 048
  16. BACTRIM DS [Concomitant]
     Active Substance: SULFAMETHOXAZOLE\TRIMETHOPRIM
     Dosage: UNK
  17. WELLBUTRIN [Concomitant]
     Active Substance: BUPROPION HYDROCHLORIDE
     Dosage: UNK

REACTIONS (8)
  - Confusional state [Unknown]
  - Colitis [Unknown]
  - Fall [Unknown]
  - Muscle twitching [Unknown]
  - Feeling abnormal [Unknown]
  - Muscle spasms [Unknown]
  - Anaemia [Unknown]
  - Blood pressure decreased [Unknown]

NARRATIVE: CASE EVENT DATE: 202002
